FAERS Safety Report 7039908-X (Version None)
Quarter: 2010Q4

REPORT INFORMATION
  Report Type: 
  Country: None (occurrence: None)
  Receive Date: 20101012
  Receipt Date: 20101001
  Transmission Date: 20110411
  Serious: Yes (Other)
  Sender: FDA-Public Use
  Company Number: US-PFIZER INC-2010105275

PATIENT
  Sex: Male
  Weight: 65.317 kg

DRUGS (1)
  1. XALATAN [Suspect]
     Indication: GLAUCOMA
     Dosage: 1 GTT, 1X/DAY
     Route: 047
     Dates: start: 20100101

REACTIONS (3)
  - ERYTHEMA OF EYELID [None]
  - EYELID IRRITATION [None]
  - VISUAL ACUITY REDUCED [None]
